FAERS Safety Report 7577571-X (Version None)
Quarter: 2011Q2

REPORT INFORMATION
  Report Type: 
  Country: None (occurrence: None)
  Receive Date: 20110628
  Receipt Date: 20110614
  Transmission Date: 20111010
  Serious: Yes (Other)
  Sender: FDA-Public Use
  Company Number: US-JNJFOC-20110305632

PATIENT
  Sex: Female
  Weight: 67 kg

DRUGS (2)
  1. IMURAN [Concomitant]
     Indication: CROHN'S DISEASE
  2. REMICADE [Suspect]
     Indication: CROHN'S DISEASE
     Route: 042
     Dates: start: 20101124

REACTIONS (6)
  - INTERVERTEBRAL DISC DISORDER [None]
  - CENTRAL NERVOUS SYSTEM LESION [None]
  - HYPOAESTHESIA [None]
  - PARAESTHESIA [None]
  - ARTHRALGIA [None]
  - ALOPECIA [None]
